FAERS Safety Report 15477912 (Version 1)
Quarter: 2018Q4

REPORT INFORMATION
  Report Type: Spontaneous
  Country: US (occurrence: US)
  Receive Date: 20181002
  Receipt Date: 20181002
  Transmission Date: 20190205
  Serious: Yes (Hospitalization)
  Sender: FDA-Public Use
  Company Number: None

PATIENT
  Age: 58 Year
  Sex: Female

DRUGS (7)
  1. ZOLOFT TABLETS [Concomitant]
  2. HUMIRA [Suspect]
     Active Substance: ADALIMUMAB
     Indication: PSORIATIC ARTHROPATHY
     Dosage: ?          OTHER FREQUENCY:EVERY 2 WEEKS;?
  3. SINGULAIR [Concomitant]
     Active Substance: MONTELUKAST SODIUM
  4. WELLBUTRIN [Concomitant]
     Active Substance: BUPROPION HYDROCHLORIDE
  5. MOBIC [Concomitant]
     Active Substance: MELOXICAM
  6. METHOTREXATE TABLETS [Concomitant]
     Active Substance: METHOTREXATE
  7. LOSARTAN POSTASSIUM [Concomitant]

REACTIONS (2)
  - Product dose omission [None]
  - Surgery [None]

NARRATIVE: CASE EVENT DATE: 20181001
